FAERS Safety Report 6444968-0 (Version None)
Quarter: 2009Q4

REPORT INFORMATION
  Report Type: 
  Country: None (occurrence: None)
  Receive Date: 20091118
  Receipt Date: 20091107
  Transmission Date: 20100525
  Serious: Yes (Other)
  Sender: FDA-Public Use
  Company Number: IN-PFIZER INC-2009295750

PATIENT
  Age: 35 Year
  Sex: Female

DRUGS (4)
  1. FLUCONAZOLE [Suspect]
     Indication: ORAL CANDIDIASIS
     Dosage: 200 MG, 1X/DAY
     Route: 048
  2. FLUCONAZOLE [Suspect]
     Dosage: 50 MG, 1X/DAY
  3. CISPLATIN [Concomitant]
     Indication: CHEMOTHERAPY
  4. ADRIAMYCIN PFS [Concomitant]
     Indication: CHEMOTHERAPY

REACTIONS (1)
  - DRUG ERUPTION [None]
